FAERS Safety Report 6435886-2 (Version None)
Quarter: 2009Q4

REPORT INFORMATION
  Report Type: 
  Country: None (occurrence: None)
  Receive Date: 20091111
  Receipt Date: 20091104
  Transmission Date: 20100525
  Serious: Yes (Hospitalization)
  Sender: FDA-Public Use
  Company Number: DE-ASTRAZENECA-2009SE24325

PATIENT
  Age: 60 Year
  Sex: Male
  Weight: 68 kg

DRUGS (7)
  1. SEROQUEL XR [Suspect]
     Indication: SCHIZOPHRENIA
     Route: 048
     Dates: end: 20090811
  2. SEROQUEL XR [Suspect]
     Route: 048
     Dates: start: 20090812, end: 20090825
  3. SEROQUEL XR [Suspect]
     Route: 048
  4. PREGABALIN [Suspect]
     Indication: ANXIETY
     Route: 048
     Dates: start: 20090811
  5. PREGABALIN [Suspect]
     Indication: RESTLESSNESS
     Route: 048
     Dates: start: 20090811
  6. PROTHIPENDYL [Suspect]
     Indication: SLEEP DISORDER
     Route: 048
     Dates: start: 20090813
  7. FLUPENTIXOL [Concomitant]
     Indication: SCHIZOPHRENIA
     Route: 048
     Dates: start: 20090715

REACTIONS (1)
  - ANTIPSYCHOTIC DRUG LEVEL INCREASED [None]
